FAERS Safety Report 14505556 (Version 2)
Quarter: 2018Q2

REPORT INFORMATION
  Report Type: Spontaneous
  Country: FR (occurrence: FR)
  Receive Date: 20180208
  Receipt Date: 20180517
  Transmission Date: 20180711
  Serious: Yes (Death, Hospitalization)
  Sender: FDA-Public Use
  Company Number: FR-TEVA-2018-FR-855005

PATIENT
  Age: 41 Year
  Sex: Male
  Weight: 66 kg

DRUGS (3)
  1. BLEOMYCINE BELLON 15 MG, POUDRE POUR SOLUTION INJECTABLE [Suspect]
     Active Substance: BLEOMYCIN SULFATE
     Indication: TESTICULAR GERM CELL CANCER METASTATIC
     Route: 042
     Dates: start: 20171026, end: 20171113
  2. CISPLATINE MYLAN [Suspect]
     Active Substance: CISPLATIN
     Indication: TESTICULAR GERM CELL CANCER METASTATIC
     Route: 042
     Dates: start: 20171026, end: 20171113
  3. ETOPOSIDE TEVA [Suspect]
     Active Substance: ETOPOSIDE
     Indication: TESTICULAR GERM CELL CANCER METASTATIC
     Route: 042
     Dates: start: 20171026, end: 20171113

REACTIONS (3)
  - Pulmonary fibrosis [Fatal]
  - Acute respiratory distress syndrome [Fatal]
  - Lung disorder [Fatal]

NARRATIVE: CASE EVENT DATE: 20171107
